FAERS Safety Report 4916699-7 (Version None)
Quarter: 2006Q1

REPORT INFORMATION
  Report Type: 
  Country: None (occurrence: None)
  Receive Date: 20060220
  Receipt Date: 20060209
  Transmission Date: 20060701
  Serious: Yes (Other)
  Sender: FDA-Public Use
  Company Number: US-ABBOTT-06P-163-0325371-00

PATIENT
  Sex: Male

DRUGS (1)
  1. MERIDIA [Suspect]
     Indication: OBESITY
     Dosage: NOT REPORTED
     Dates: start: 20010609, end: 20010928

REACTIONS (1)
  - CEREBROVASCULAR ACCIDENT [None]
